FAERS Safety Report 9994383 (Version 1)
Quarter: 2014Q1

REPORT INFORMATION
  Report Type: Spontaneous
  Country: US (occurrence: US)
  Receive Date: 20140311
  Receipt Date: 20140311
  Transmission Date: 20141002
  Serious: Yes (Other)
  Sender: FDA-Public Use
  Company Number: US-ORION CORPORATION ORION PHARMA-ENT 2014-0042

PATIENT
  Age: 72 Year
  Sex: Female

DRUGS (6)
  1. ENTACAPONE [Suspect]
     Route: 065
  2. VALPROIC ACID [Suspect]
     Indication: DEPRESSION
     Route: 065
  3. CARBIDOPA/LEVODOPA [Suspect]
     Indication: PARKINSONISM
     Dosage: STRENGTH: 25/100
     Route: 065
  4. CARBIDOPA/LEVODOPA [Suspect]
     Dosage: STRENGTH: 25/100
     Route: 065
  5. RISPERIDONE [Suspect]
     Route: 065
  6. LEVODOPA [Concomitant]
     Route: 065

REACTIONS (1)
  - Balance disorder [Recovered/Resolved]
